FAERS Safety Report 12531165 (Version 1)
Quarter: 2016Q3

REPORT INFORMATION
  Report Type: Spontaneous
  Country: US (occurrence: US)
  Receive Date: 20160706
  Receipt Date: 20160706
  Transmission Date: 20161109
  Serious: Yes (Hospitalization)
  Sender: FDA-Public Use
  Company Number: US-LPDUSPRD-20160513

PATIENT
  Age: 57 Year
  Sex: Male
  Weight: 96.62 kg

DRUGS (6)
  1. ASPIRIN. [Concomitant]
     Active Substance: ASPIRIN
     Dosage: 81 MG DAILY
     Route: 048
  2. DILAUDID [Suspect]
     Active Substance: HYDROMORPHONE HYDROCHLORIDE
     Dosage: 4.455MG/DAY VIA PUMP
     Route: 065
  3. ADVIL [Concomitant]
     Active Substance: IBUPROFEN
     Dosage: 200MG (2 TABLETS)
     Route: 048
  4. CLONIDINE HYDROCHLORIDE INJECTION, USP (0730-01) [Suspect]
     Active Substance: CLONIDINE HYDROCHLORIDE
     Dosage: 89.10 UG/DAY VIA PUMP
     Route: 065
  5. MELATONIN [Concomitant]
     Active Substance: MELATONIN
     Dosage: 10MG AT NIGHT
     Route: 048
  6. ADVIL PM [Suspect]
     Active Substance: DIPHENHYDRAMINE CITRATE\IBUPROFEN
     Dosage: 200 MG IN EVENING
     Route: 065

REACTIONS (16)
  - Sleep apnoea syndrome [Unknown]
  - Pyrexia [Unknown]
  - Headache [Unknown]
  - Fall [Unknown]
  - Drug withdrawal syndrome [Recovered/Resolved]
  - Sinus disorder [Unknown]
  - Weight decreased [Unknown]
  - Muscular weakness [Unknown]
  - Paraesthesia [Recovered/Resolved]
  - Headache [Recovered/Resolved]
  - Transient ischaemic attack [Unknown]
  - Intervertebral disc degeneration [Unknown]
  - Rash erythematous [Unknown]
  - Blood pressure increased [Unknown]
  - Arthritis [Unknown]
  - Neuropathy peripheral [Unknown]

NARRATIVE: CASE EVENT DATE: 201103
